FAERS Safety Report 9913105 (Version 1)
Quarter: 2014Q1

REPORT INFORMATION
  Report Type: Spontaneous
  Country: US (occurrence: None)
  Receive Date: 20140218
  Receipt Date: 20140218
  Transmission Date: 20141002
  Serious: Yes (Hospitalization, Disabling, Other)
  Sender: FDA-Public Use
  Company Number: None

PATIENT
  Age: 55 Year
  Sex: Female
  Weight: 74.84 kg

DRUGS (9)
  1. ORTHO-NOVUM 1/50 28 [Suspect]
     Indication: ABDOMINAL PAIN UPPER
     Dosage: 1/50?1 PILL ADAY?1XDAILY?BY MOUTH
     Route: 048
     Dates: start: 19720716, end: 19781020
  2. PLAVIX [Concomitant]
  3. PROVERA [Concomitant]
  4. AMIRIX [Concomitant]
  5. METANEX [Concomitant]
  6. ACIPHEX [Concomitant]
  7. GABAPENTIN [Concomitant]
  8. SUPHEDRINE [Concomitant]
  9. IRON [Concomitant]

REACTIONS (1)
  - Thrombosis [None]
